FAERS Safety Report 4684222-0 (Version None)
Quarter: 2005Q2

REPORT INFORMATION
  Report Type: 
  Country: None (occurrence: None)
  Receive Date: 20050531
  Receipt Date: 20041213
  Transmission Date: 20051028
  Serious: Yes (Hospitalization)
  Sender: FDA-Public Use
  Company Number: US_0411108191

PATIENT
  Age: 52 Year
  Sex: Male
  Weight: 79 kg

DRUGS (2)
  1. ZYPREXA [Suspect]
     Indication: BIPOLAR DISORDER
     Dosage: 25 MG/1 DAY
     Dates: start: 20040301, end: 20041020
  2. ZOLOFT [Concomitant]

REACTIONS (1)
  - EXTRAPYRAMIDAL DISORDER [None]
